FAERS Safety Report 7443194-6 (Version None)
Quarter: 2011Q2

REPORT INFORMATION
  Report Type: 
  Country: None (occurrence: None)
  Receive Date: 20110428
  Receipt Date: 20110418
  Transmission Date: 20111010
  Serious: Yes (Hospitalization, Disabling)
  Sender: FDA-Public Use
  Company Number: B0690840A

PATIENT
  Sex: Female
  Weight: 51 kg

DRUGS (64)
  1. LOXONIN [Concomitant]
     Dosage: 180MG PER DAY
     Route: 048
     Dates: start: 20100324, end: 20100324
  2. POSTERISAN [Concomitant]
     Dosage: 2G PER DAY
     Route: 054
     Dates: start: 20100401, end: 20100401
  3. SOLDEM 3A [Concomitant]
     Dosage: 1000ML PER DAY
     Route: 042
     Dates: start: 20100324, end: 20100421
  4. MORPHINE HYDROCHLORIDE [Concomitant]
     Dosage: 40MG PER DAY
     Dates: start: 20100406, end: 20100406
  5. CONCENTRATED RED BLOOD CELLS [Concomitant]
     Dosage: 2IUAX PER DAY
     Dates: start: 20100324, end: 20100324
  6. ZOVIRAX [Concomitant]
     Dosage: 1G PER DAY
     Route: 048
     Dates: start: 20100324, end: 20100329
  7. NAUZELIN [Concomitant]
     Route: 054
     Dates: start: 20100329, end: 20100403
  8. MEYLON [Concomitant]
     Dosage: 40ML PER DAY
     Route: 042
     Dates: start: 20100324, end: 20100401
  9. SEROTONE [Concomitant]
     Dosage: 10MG PER DAY
     Route: 042
     Dates: start: 20100326, end: 20100326
  10. FUROSEMIDE [Concomitant]
     Dosage: 20MG PER DAY
     Route: 042
     Dates: start: 20100326, end: 20100326
  11. PRIMPERAN TAB [Concomitant]
     Dosage: 10MG PER DAY
     Route: 042
     Dates: start: 20100326, end: 20100327
  12. HAPTOGLOBIN [Concomitant]
     Dosage: 200ML PER DAY
     Route: 042
     Dates: start: 20100329, end: 20100329
  13. FLURBIPROFEN [Concomitant]
     Dosage: 50MG PER DAY
     Route: 042
     Dates: start: 20100406, end: 20100412
  14. VANCOMYCIN [Concomitant]
     Dates: start: 20100404, end: 20100404
  15. FLAGYL [Concomitant]
     Dosage: 1500MG PER DAY
     Route: 048
     Dates: start: 20100402, end: 20100408
  16. MEROPENEM [Concomitant]
     Dosage: 2G PER DAY
     Route: 042
     Dates: start: 20100401, end: 20100412
  17. ALKERAN [Suspect]
     Indication: STEM CELL TRANSPLANT
     Dosage: 200MGM2 PER DAY
     Route: 042
     Dates: start: 20100326, end: 20100326
  18. AMIKACIN SULFATE [Concomitant]
     Dosage: 15MG PER DAY
     Route: 048
     Dates: start: 20100324, end: 20100329
  19. HACHIAZULE [Concomitant]
     Dosage: 2MG PER DAY
     Route: 002
     Dates: start: 20100328, end: 20100329
  20. MORPHINE HYDROCHLORIDE [Concomitant]
     Dosage: 30MG PER DAY
     Dates: start: 20100407, end: 20100409
  21. UNKNOWN MEDICATION [Concomitant]
     Dosage: 1000ML PER DAY
     Route: 042
     Dates: start: 20100325, end: 20100408
  22. PRIMPERAN TAB [Concomitant]
     Dosage: 10MG PER DAY
     Route: 042
     Dates: start: 20100419, end: 20100419
  23. POTASSIUM CHLORIDE [Concomitant]
     Dosage: 20MEQ PER DAY
     Route: 042
     Dates: start: 20100331, end: 20100421
  24. VANCOMYCIN HYDROCHLORIDE [Concomitant]
     Dosage: 2000MG PER DAY
     Route: 048
     Dates: start: 20100402, end: 20100405
  25. DUROTEP [Concomitant]
     Route: 062
     Dates: start: 20100325, end: 20100421
  26. LAXOBERON [Concomitant]
     Route: 048
     Dates: start: 20100324, end: 20100324
  27. PHYSIO 35 [Concomitant]
     Dosage: 1000ML PER DAY
     Route: 042
     Dates: start: 20100324, end: 20100324
  28. GRANISETRON HCL [Concomitant]
     Dosage: 3MG PER DAY
     Route: 042
     Dates: start: 20100326, end: 20100326
  29. VICCLOX [Concomitant]
     Dosage: 250MG PER DAY
     Route: 042
     Dates: start: 20100422, end: 20100422
  30. VANCOMYCIN [Concomitant]
     Dosage: 1G PER DAY
     Route: 042
     Dates: start: 20100404, end: 20100404
  31. CONCENTRATED RED BLOOD CELLS [Concomitant]
     Dosage: 2IUAX PER DAY
     Dates: start: 20100401, end: 20100401
  32. GABAPEN [Concomitant]
     Dosage: 400MG PER DAY
     Route: 048
     Dates: start: 20100324, end: 20100324
  33. NAUZELIN [Concomitant]
     Dosage: 30MG PER DAY
     Route: 048
     Dates: start: 20100324, end: 20100329
  34. FRANDOL S [Concomitant]
     Dosage: 40MG PER DAY
     Route: 062
     Dates: start: 20100329, end: 20100418
  35. PHYSIO 35 [Concomitant]
     Dosage: 500ML PER DAY
     Route: 042
     Dates: start: 20100325, end: 20100325
  36. MEYLON [Concomitant]
     Dosage: 20ML PER DAY
     Route: 042
     Dates: start: 20100402, end: 20100409
  37. OMEPRAL [Concomitant]
     Dosage: 40MG PER DAY
     Route: 042
     Dates: start: 20100324, end: 20100416
  38. MORPHINE HYDROCHLORIDE [Concomitant]
     Dosage: 12MG PER DAY
     Dates: start: 20100331, end: 20100331
  39. MORPHINE HYDROCHLORIDE [Concomitant]
     Dosage: 10MG PER DAY
     Dates: start: 20100411, end: 20100413
  40. VENOGLOBULIN [Concomitant]
     Dosage: 2.5MG PER DAY
     Route: 042
     Dates: start: 20100326, end: 20100327
  41. HEPARIN SODIUM [Concomitant]
     Dosage: 5ML PER DAY
     Route: 042
     Dates: start: 20100328, end: 20100328
  42. METILON [Concomitant]
     Dosage: 500MG PER DAY
     Dates: start: 20100401, end: 20100401
  43. VANCOMYCIN [Concomitant]
     Dosage: 1G PER DAY
     Route: 042
     Dates: start: 20100405, end: 20100412
  44. FUNGUARD [Concomitant]
     Dosage: 50MG PER DAY
     Route: 042
     Dates: start: 20100402, end: 20100409
  45. SERENACE [Concomitant]
     Dosage: .75MG PER DAY
     Route: 048
     Dates: start: 20100324, end: 20100329
  46. MAGNESIUM OXIDE [Concomitant]
     Dosage: 2.01G PER DAY
     Route: 048
     Dates: start: 20100324, end: 20100329
  47. SOLDEM 3A [Concomitant]
     Dosage: 500ML PER DAY
     Route: 042
     Dates: start: 20100422, end: 20100422
  48. OLIVE LEAF [Concomitant]
     Dosage: 480MG PER DAY
     Dates: start: 20100324, end: 20100416
  49. VICCLOX [Concomitant]
     Dosage: 500MG PER DAY
     Route: 042
     Dates: start: 20100327, end: 20100421
  50. METILON [Concomitant]
     Dosage: 250MG PER DAY
     Dates: start: 20100402, end: 20100404
  51. VANCOMYCIN [Concomitant]
     Dosage: .5G PER DAY
     Route: 042
     Dates: start: 20100403, end: 20100403
  52. UNKNOWN MEDICATION [Concomitant]
     Dosage: 1000ML PER DAY
     Route: 042
     Dates: start: 20100409, end: 20100420
  53. NEUTROGIN [Concomitant]
     Dosage: 250MCG PER DAY
     Dates: start: 20100330, end: 20100409
  54. DIOVAN [Concomitant]
     Dosage: 80MG PER DAY
     Route: 048
     Dates: start: 20100324, end: 20100329
  55. PARIET [Concomitant]
     Dosage: 10MG PER DAY
     Route: 048
     Dates: start: 20100324, end: 20100329
  56. LENDORMIN [Concomitant]
     Dosage: .25MG PER DAY
     Route: 048
     Dates: start: 20100324, end: 20100329
  57. ITRIZOLE [Concomitant]
     Dosage: 20ML PER DAY
     Route: 048
     Dates: start: 20100324, end: 20100329
  58. VOLTAREN [Concomitant]
     Dosage: 75MG PER DAY
     Route: 054
     Dates: start: 20100326, end: 20100403
  59. PANTOL [Concomitant]
     Dosage: 500MG PER DAY
     Dates: start: 20100327, end: 20100401
  60. MORPHINE HYDROCHLORIDE [Concomitant]
     Dosage: 10MG PER DAY
     Dates: start: 20100324, end: 20100330
  61. MORPHINE HYDROCHLORIDE [Concomitant]
     Dosage: 10MG PER DAY
     Dates: start: 20100401, end: 20100404
  62. MORPHINE HYDROCHLORIDE [Concomitant]
     Dosage: 20MG PER DAY
     Dates: start: 20100405, end: 20100405
  63. VICCLOX [Concomitant]
     Dosage: 250MG PER DAY
     Route: 042
     Dates: start: 20100326, end: 20100326
  64. SODIUM CHLORIDE [Concomitant]
     Dosage: 20ML PER DAY
     Route: 042
     Dates: start: 20100329, end: 20100330

REACTIONS (8)
  - URINE OUTPUT DECREASED [None]
  - PYREXIA [None]
  - DIARRHOEA [None]
  - FEBRILE NEUTROPENIA [None]
  - DECREASED APPETITE [None]
  - NAUSEA [None]
  - STOMATITIS [None]
  - PSEUDOMEMBRANOUS COLITIS [None]
